FAERS Safety Report 9508891 (Version 1)
Quarter: 2013Q3

REPORT INFORMATION
  Report Type: Spontaneous
  Country: US (occurrence: None)
  Receive Date: 20130909
  Receipt Date: 20130909
  Transmission Date: 20140515
  Serious: Yes (Hospitalization)
  Sender: FDA-Public Use
  Company Number: None

PATIENT
  Age: 71 Year
  Sex: Female
  Weight: 65 kg

DRUGS (1)
  1. UNSPECIFIED INGREDIENT [Suspect]
     Indication: PAIN MANAGEMENT
     Dates: start: 20130827

REACTIONS (2)
  - Mental status changes [None]
  - Meningitis bacterial [None]
